FAERS Safety Report 5446027-2 (Version None)
Quarter: 2007Q3

REPORT INFORMATION
  Report Type: 
  Country: None (occurrence: None)
  Receive Date: 20070907
  Receipt Date: 20070829
  Transmission Date: 20080115
  Serious: Yes (Hospitalization)
  Sender: FDA-Public Use
  Company Number: US-ELI_LILLY_AND_COMPANY-US200708001046

PATIENT
  Age: 66 Year
  Sex: Male
  Weight: 104.31 kg

DRUGS (9)
  1. BYETTA [Suspect]
     Indication: TYPE 2 DIABETES MELLITUS
     Dosage: 5 UG, 2/D
     Route: 058
     Dates: start: 20051101, end: 20051201
  2. BYETTA [Suspect]
     Dosage: 10 UG, 2/D
     Route: 058
     Dates: start: 20051201
  3. SYNTHROID [Concomitant]
     Indication: THYROID DISORDER
     Dosage: 0.125 MG, DAILY (1/D)
     Route: 048
  4. ZOCOR [Concomitant]
     Indication: BLOOD CHOLESTEROL
     Dosage: 20 MG, DAILY (1/D)
  5. GLUCOPHAGE /USA/ [Concomitant]
     Indication: DIABETES MELLITUS
     Dosage: 1000 MG, 2/D
     Route: 048
  6. ACTOS [Concomitant]
     Indication: DIABETES MELLITUS
     Dosage: 45 MG, DAILY (1/D)
  7. LANTUS [Concomitant]
     Indication: DIABETES MELLITUS
     Dates: end: 20060101
  8. LANTUS [Concomitant]
     Dosage: 70 U, DAILY (1/D)
     Route: 058
  9. ANTIHYPERTENSIVES [Concomitant]
     Dosage: UNK, DAILY (1/D)

REACTIONS (11)
  - ARTHRITIS [None]
  - DIARRHOEA [None]
  - JOINT STIFFNESS [None]
  - JOINT SWELLING [None]
  - PAIN IN EXTREMITY [None]
  - POSTOPERATIVE WOUND INFECTION [None]
  - SKIN NECROSIS [None]
  - STAPHYLOCOCCAL BACTERAEMIA [None]
  - THROMBOSIS [None]
  - VOMITING [None]
  - WEIGHT DECREASED [None]
